FAERS Safety Report 8297708-7 (Version None)
Quarter: 2012Q2

REPORT INFORMATION
  Report Type: 
  Country: None (occurrence: None)
  Receive Date: 20120419
  Receipt Date: 20120416
  Transmission Date: 20120825
  Serious: Yes (Other)
  Sender: FDA-Public Use
  Company Number: JP-PFIZER INC-2012053111

PATIENT
  Age: 90 Year
  Sex: Female

DRUGS (4)
  1. GRAMALIL [Concomitant]
     Dosage: 50 MG, DAILY
     Route: 048
  2. AMLODIPINE [Concomitant]
     Dosage: 5 MG, DAILY
     Route: 048
  3. ENALAPRIL [Concomitant]
     Dosage: 25 MG, DAILY
     Route: 048
  4. ALDACTONE [Suspect]
     Dosage: 25 MG, DAILY
     Route: 048
     Dates: start: 20000101

REACTIONS (4)
  - POSTMENOPAUSAL HAEMORRHAGE [None]
  - HAEMORRHOIDS [None]
  - FAECAL INCONTINENCE [None]
  - CERVIX CARCINOMA [None]
